FAERS Safety Report 5481720-7 (Version None)
Quarter: 2007Q3

REPORT INFORMATION
  Report Type: 
  Country: None (occurrence: None)
  Receive Date: 20070927
  Receipt Date: 20061213
  Transmission Date: 20080115
  Serious: Yes (Other)
  Sender: FDA-Public Use
  Company Number: S06-USA-05273-01

PATIENT
  Sex: Female

DRUGS (2)
  1. CELEXA [Suspect]
     Indication: DEPRESSION
     Dosage: 20 MG QD PO
     Route: 048
     Dates: start: 20060101, end: 20061101
  2. NARCOTICS (NOS) [Concomitant]

REACTIONS (1)
  - CONVULSION [None]
